FAERS Safety Report 25407030 (Version 1)
Quarter: 2025Q2

REPORT INFORMATION
  Report Type: Spontaneous
  Country: US (occurrence: US)
  Receive Date: 20250606
  Receipt Date: 20250606
  Transmission Date: 20250717
  Serious: No
  Sender: MYLAN
  Company Number: US-MYLANLABS-2025M1040819

PATIENT
  Age: 61 Year
  Sex: Female

DRUGS (4)
  1. ESTRADIOL [Suspect]
     Active Substance: ESTRADIOL
     Indication: Atrophic vulvovaginitis
     Dosage: 1 GRAM, PM (1 GRAM VAGINALLY DAILY, X 2 WEEKS THEN X 3 WEEKS)
     Dates: start: 20250330, end: 202504
  2. ESTRADIOL [Suspect]
     Active Substance: ESTRADIOL
     Dosage: 1 GRAM, PM (1 GRAM VAGINALLY DAILY, X 2 WEEKS THEN X 3 WEEKS)
     Route: 067
     Dates: start: 20250330, end: 202504
  3. ESTRADIOL [Suspect]
     Active Substance: ESTRADIOL
     Dosage: 1 GRAM, PM (1 GRAM VAGINALLY DAILY, X 2 WEEKS THEN X 3 WEEKS)
     Route: 067
     Dates: start: 20250330, end: 202504
  4. ESTRADIOL [Suspect]
     Active Substance: ESTRADIOL
     Dosage: 1 GRAM, PM (1 GRAM VAGINALLY DAILY, X 2 WEEKS THEN X 3 WEEKS)
     Dates: start: 20250330, end: 202504

REACTIONS (2)
  - Device use confusion [Unknown]
  - Device issue [Unknown]

NARRATIVE: CASE EVENT DATE: 20250330
